FAERS Safety Report 4556510-X (Version None)
Quarter: 2005Q1

REPORT INFORMATION
  Report Type: 
  Country: None (occurrence: None)
  Receive Date: 20050120
  Receipt Date: 20041006
  Transmission Date: 20050727
  Serious: Yes (Other)
  Sender: FDA-Public Use
  Company Number: 200420202GDDC

PATIENT
  Age: 40 Year
  Sex: Female

DRUGS (8)
  1. TELFAST [Suspect]
     Indication: URTICARIA
     Route: 048
  2. CIMETIDINE [Suspect]
     Dosage: DOSE: UNK
  3. DESALEX [Concomitant]
     Indication: URTICARIA
     Route: 048
  4. XYZAL [Concomitant]
     Indication: URTICARIA
     Route: 048
  5. INSULIN [Concomitant]
     Indication: DIABETES MELLITUS INSULIN-DEPENDENT
  6. APROVEL [Concomitant]
     Indication: HYPERTENSION
  7. LASIX [Concomitant]
  8. ACTRAPID [Concomitant]

REACTIONS (1)
  - HEPATOTOXICITY [None]
